FAERS Safety Report 20437524 (Version 6)
Quarter: 2025Q1

REPORT INFORMATION
  Report Type: Spontaneous
  Country: CA (occurrence: CA)
  Receive Date: 20220207
  Receipt Date: 20250107
  Transmission Date: 20250409
  Serious: Yes (Other)
  Sender: PFIZER
  Company Number: CA-PFIZER INC-202200175743

PATIENT
  Age: 74 Year
  Sex: Female

DRUGS (8)
  1. XELJANZ [Suspect]
     Active Substance: TOFACITINIB CITRATE
     Indication: Rheumatoid arthritis
     Dosage: 5 MG, 2X/DAY
     Route: 048
     Dates: start: 202111, end: 2024
  2. ATORVASTATIN [Concomitant]
     Active Substance: ATORVASTATIN
     Route: 065
  3. BUPROPION [Concomitant]
     Active Substance: BUPROPION
     Route: 065
  4. CHLORTHALIDONE [Concomitant]
     Active Substance: CHLORTHALIDONE
     Route: 065
  5. LEVOTHYROXINE [Concomitant]
     Active Substance: LEVOTHYROXINE
     Route: 065
  6. METFORMIN [Concomitant]
     Active Substance: METFORMIN HYDROCHLORIDE
  7. RAMIPRIL [Concomitant]
     Active Substance: RAMIPRIL
     Route: 065
  8. VENLAFAXINE [Concomitant]
     Active Substance: VENLAFAXINE HYDROCHLORIDE
     Route: 065

REACTIONS (8)
  - Cataract [Unknown]
  - Drug ineffective [Not Recovered/Not Resolved]
  - Malaise [Unknown]
  - Influenza [Not Recovered/Not Resolved]
  - Nausea [Recovering/Resolving]
  - Arthralgia [Not Recovered/Not Resolved]
  - Illness [Recovering/Resolving]
  - Asthenia [Recovered/Resolved]

NARRATIVE: CASE EVENT DATE: 20220101
